FAERS Safety Report 19161525 (Version 1)
Quarter: 2021Q2

REPORT INFORMATION
  Report Type: Spontaneous
  Country: US (occurrence: US)
  Receive Date: 20210420
  Receipt Date: 20210420
  Transmission Date: 20210717
  Serious: Yes (Other)
  Sender: FDA-Public Use
  Company Number: None

PATIENT
  Age: 5 Year
  Sex: Female
  Weight: 18.45 kg

DRUGS (2)
  1. CHILDRENS BENADRYL ALLERGY [Suspect]
     Active Substance: DIPHENHYDRAMINE HYDROCHLORIDE
     Indication: HYPERSENSITIVITY
     Dates: start: 20210412, end: 20210412
  2. CHILDREN^S VITAMINS [Concomitant]

REACTIONS (3)
  - Sleep terror [None]
  - Nightmare [None]
  - Seizure [None]

NARRATIVE: CASE EVENT DATE: 20210413
